FAERS Safety Report 22525630 (Version 3)
Quarter: 2023Q2

REPORT INFORMATION
  Report Type: Spontaneous
  Country: US (occurrence: US)
  Receive Date: 20230606
  Receipt Date: 20230623
  Transmission Date: 20230722
  Serious: No
  Sender: FDA-Public Use
  Company Number: US-SA-SAC20230605000524

PATIENT
  Sex: Female
  Weight: 66.667 kg

DRUGS (24)
  1. DUPIXENT [Suspect]
     Active Substance: DUPILUMAB
     Indication: Dermatitis atopic
     Dosage: 300 MG, QOW
     Route: 058
     Dates: start: 20190315
  2. DUPIXENT [Suspect]
     Active Substance: DUPILUMAB
     Indication: Eczema
     Dosage: 200 MG, QOW
     Route: 058
  3. BETAMETHASONE ACETATE [Concomitant]
     Active Substance: BETAMETHASONE ACETATE
  4. MINERALS\VITAMINS [Concomitant]
     Active Substance: MINERALS\VITAMINS
  5. TACROLIMUS [Concomitant]
     Active Substance: TACROLIMUS
  6. TRIAMCINOLONE ACETONIDE [Concomitant]
     Active Substance: TRIAMCINOLONE ACETONIDE
     Dosage: UNK
  7. PROAIR HFA [Concomitant]
     Active Substance: ALBUTEROL SULFATE
  8. ROGAINE [Concomitant]
     Active Substance: MINOXIDIL
  9. METHOTREXATE [Concomitant]
     Active Substance: METHOTREXATE
  10. BUDESONIDE [Concomitant]
     Active Substance: BUDESONIDE
  11. FAMOTIDINE [Concomitant]
     Active Substance: FAMOTIDINE
  12. GABAPENTIN [Concomitant]
     Active Substance: GABAPENTIN
  13. HYDROXYZINE HYDROCHLORIDE [Concomitant]
     Active Substance: HYDROXYZINE HYDROCHLORIDE
  14. LANSOPRAZOLE [Concomitant]
     Active Substance: LANSOPRAZOLE
  15. MONTELUKAST SODIUM [Concomitant]
     Active Substance: MONTELUKAST SODIUM
  16. SERTRALINE HYDROCHLORIDE [Concomitant]
     Active Substance: SERTRALINE HYDROCHLORIDE
  17. RINVOQ [Concomitant]
     Active Substance: UPADACITINIB
     Dosage: UNK
  18. QUADRACEL [Concomitant]
     Active Substance: DIPHTHERIA AND TETANUS TOXOIDS AND ACELLULAR PERTUSSIS ADSORBED AND INACTIVATED POLIOVIRUS VACCINE
     Indication: Immunisation
     Dosage: UNK
  19. GLUCOSAMINE + CHONDORITIN [Concomitant]
     Dosage: UNK
  20. CALCIUM [Concomitant]
     Active Substance: CALCIUM
  21. VITAMIN D NOS [Concomitant]
     Active Substance: VITAMIN D NOS
     Dosage: UNK
  22. PROAIR DIGIHALER [Concomitant]
     Active Substance: ALBUTEROL SULFATE
     Dosage: UNK
  23. VITAMINS [Concomitant]
     Active Substance: VITAMINS
     Dosage: UNK
  24. FAMOTIDINE [Concomitant]
     Active Substance: FAMOTIDINE
     Dosage: UNK

REACTIONS (3)
  - Arthralgia [Not Recovered/Not Resolved]
  - Drug ineffective [Unknown]
  - Product prescribing issue [Unknown]
